FAERS Safety Report 4599995-5 (Version None)
Quarter: 2005Q1

REPORT INFORMATION
  Report Type: 
  Country: None (occurrence: None)
  Receive Date: 20050307
  Receipt Date: 20050225
  Transmission Date: 20050727
  Serious: Yes (Other)
  Sender: FDA-Public Use
  Company Number: PHBS2005BR02969

PATIENT
  Age: 29 Year
  Sex: Male
  Weight: 89 kg

DRUGS (10)
  1. LEPONEX [Suspect]
     Indication: SCHIZOAFFECTIVE DISORDER
     Dosage: 50 MG/D
     Route: 048
     Dates: end: 20041201
  2. ANAFRANIL [Suspect]
     Indication: DEPRESSION
     Dosage: 10 MG/D
     Route: 048
  3. ANAFRANIL [Suspect]
     Dosage: 25 MG/D
     Route: 048
  4. ANAFRANIL [Suspect]
     Dosage: 37.5 MG/D
     Route: 048
     Dates: start: 20040101, end: 20041201
  5. ANAFRANIL [Suspect]
     Route: 048
     Dates: start: 20050224
  6. GEODON [Concomitant]
     Route: 048
     Dates: start: 20041201
  7. MELLERIL [Concomitant]
     Route: 065
  8. PAMELOR [Concomitant]
     Route: 065
  9. LUVOX [Concomitant]
     Route: 065
  10. ZYPREXA [Concomitant]
     Route: 065

REACTIONS (12)
  - AGITATION [None]
  - ASTHENIA [None]
  - CONFUSIONAL STATE [None]
  - DELIRIUM [None]
  - DEPRESSED MOOD [None]
  - DIZZINESS [None]
  - EATING DISORDER [None]
  - EJACULATION FAILURE [None]
  - HALLUCINATION [None]
  - INCREASED APPETITE [None]
  - SOMNOLENCE [None]
  - WEIGHT DECREASED [None]
